FAERS Safety Report 5644776-4 (Version None)
Quarter: 2008Q1

REPORT INFORMATION
  Report Type: 
  Country: None (occurrence: None)
  Receive Date: 20080229
  Receipt Date: 20070723
  Transmission Date: 20080703
  Serious: No
  Sender: FDA-Public Use
  Company Number: A0666576A

PATIENT
  Sex: Male

DRUGS (2)
  1. VALTREX [Suspect]
     Dosage: 1TAB THREE TIMES PER DAY
     Route: 065
  2. DARUNAVIR [Suspect]
     Indication: HIV INFECTION
     Route: 065

REACTIONS (5)
  - DRUG INTERACTION [None]
  - HEADACHE [None]
  - HICCUPS [None]
  - INFLUENZA LIKE ILLNESS [None]
  - NAUSEA [None]
